FAERS Safety Report 11952644 (Version 6)
Quarter: 2016Q3

REPORT INFORMATION
  Report Type: Spontaneous
  Country: JP (occurrence: JP)
  Receive Date: 20160125
  Receipt Date: 20160803
  Transmission Date: 20161109
  Serious: Yes (Hospitalization)
  Sender: FDA-Public Use
  Company Number: JP-GILEAD-2016-0193641

PATIENT
  Age: 74 Year
  Sex: Female
  Weight: 62.5 kg

DRUGS (7)
  1. HARVONI [Suspect]
     Active Substance: LEDIPASVIR\SOFOSBUVIR
     Indication: HEPATITIS C
     Dosage: 1 DF, UNK
     Route: 048
     Dates: start: 20151208, end: 20160112
  2. CLARITIN [Concomitant]
     Active Substance: LORATADINE
     Indication: RHINITIS ALLERGIC
     Dosage: 10 MG, UNK
     Route: 048
     Dates: start: 20090109
  3. GASMOTIN [Concomitant]
     Active Substance: MOSAPRIDE CITRATE
     Indication: CHRONIC GASTRITIS
     Dosage: 5 MG, UNK
     Route: 048
     Dates: start: 20091030
  4. PARIET [Concomitant]
     Active Substance: RABEPRAZOLE SODIUM
     Indication: GASTROOESOPHAGEAL REFLUX DISEASE
     Dosage: 10 MG, UNK
     Route: 048
     Dates: start: 20091030
  5. LUPRAC [Concomitant]
     Active Substance: TORSEMIDE
     Dosage: UNK
     Route: 065
  6. CONIEL [Concomitant]
     Active Substance: BENIDIPINE HYDROCHLORIDE
     Indication: HYPERTENSION
     Dosage: 4 MG, UNK
     Route: 048
     Dates: start: 20070824
  7. CANDESARTAN [Concomitant]
     Active Substance: CANDESARTAN
     Dosage: UNK
     Route: 065

REACTIONS (2)
  - Stress cardiomyopathy [Recovering/Resolving]
  - Visual impairment [Recovered/Resolved]

NARRATIVE: CASE EVENT DATE: 20151216
